FAERS Safety Report 4694126-5 (Version None)
Quarter: 2005Q2

REPORT INFORMATION
  Report Type: 
  Country: None (occurrence: None)
  Receive Date: 20050617
  Receipt Date: 20050617
  Transmission Date: 20051028
  Serious: Yes (Other)
  Sender: FDA-Public Use
  Company Number: None

PATIENT
  Sex: Male
  Weight: 79 kg

DRUGS (2)
  1. CPT 11 [Suspect]
     Indication: GLIOBLASTOMA MULTIFORME
     Dosage: 200 MG/M
     Dates: start: 20050607
  2. TEMODAR [Suspect]

REACTIONS (2)
  - NEUTROPENIA [None]
  - PHARYNGOLARYNGEAL PAIN [None]
